FAERS Safety Report 8131581-2 (Version None)
Quarter: 2012Q1

REPORT INFORMATION
  Report Type: 
  Country: None (occurrence: None)
  Receive Date: 20120213
  Receipt Date: 20120210
  Transmission Date: 20120608
  Serious: No
  Sender: FDA-Public Use
  Company Number: US-PFIZER INC-2012037242

PATIENT
  Sex: Female
  Weight: 128 kg

DRUGS (7)
  1. LUNESTA [Concomitant]
     Indication: SLEEP DISORDER
     Dosage: UNK
  2. CHANTIX [Suspect]
     Dosage: UNK
     Route: 048
     Dates: start: 20120201
  3. MICARDIS [Concomitant]
     Indication: HYPERTENSION
     Dosage: UNK
  4. LOESTRIN FE 1/20 [Concomitant]
     Indication: CONTRACEPTION
     Dosage: UNK
  5. ATIVAN [Concomitant]
     Indication: ANXIETY
     Dosage: UNK, AS NEEDED
  6. CHANTIX [Suspect]
     Indication: SMOKING CESSATION THERAPY
     Dosage: 0.5 MG, 1X/DAY
     Route: 048
     Dates: start: 20120201, end: 20120201
  7. CYMBALTA [Concomitant]
     Indication: DEPRESSION
     Dosage: UNK

REACTIONS (3)
  - FEELING ABNORMAL [None]
  - IRRITABILITY [None]
  - DEPRESSED MOOD [None]
